FAERS Safety Report 19706249 (Version 1)
Quarter: 2021Q3

REPORT INFORMATION
  Report Type: Spontaneous
  Country: US (occurrence: US)
  Receive Date: 20210817
  Receipt Date: 20210817
  Transmission Date: 20211014
  Serious: Yes (Hospitalization, Other)
  Sender: FDA-Public Use
  Company Number: US-AUROBINDO-AUR-APL-2021-034626

PATIENT
  Age: 15 Year
  Sex: Female

DRUGS (5)
  1. HYDROXYZINE [Suspect]
     Active Substance: HYDROXYZINE HYDROCHLORIDE
     Dosage: 50 UNK
     Route: 048
  2. NALTREXONE [Suspect]
     Active Substance: NALTREXONE
     Dosage: 75 MILLIGRAM, ONCE A DAY
     Route: 065
  3. DIPHENHYDRAMINE. [Suspect]
     Active Substance: DIPHENHYDRAMINE
     Indication: PRODUCT USED FOR UNKNOWN INDICATION
     Dosage: 400 MILLIGRAM, ONCE A DAY
     Route: 065
  4. HYDROXYZINE [Suspect]
     Active Substance: HYDROXYZINE HYDROCHLORIDE
     Indication: ANXIETY
     Dosage: 25 MILLIGRAM, 3 TIMES A DAY
     Route: 048
  5. NALTREXONE [Suspect]
     Active Substance: NALTREXONE
     Indication: PRODUCT USED FOR UNKNOWN INDICATION
     Dosage: 25 MILLIGRAM
     Route: 048

REACTIONS (9)
  - Drug abuse [Unknown]
  - Disturbance in attention [Unknown]
  - Irritability [Unknown]
  - Nausea [Recovered/Resolved]
  - Nasal congestion [Unknown]
  - Oropharyngeal discomfort [Unknown]
  - Withdrawal syndrome [Unknown]
  - Drug tolerance [Unknown]
  - Drug dependence [Unknown]
